FAERS Safety Report 8169943-X (Version None)
Quarter: 2012Q1

REPORT INFORMATION
  Report Type: 
  Country: None (occurrence: None)
  Receive Date: 20120228
  Receipt Date: 20120228
  Transmission Date: 20120608
  Serious: Yes (Other)
  Sender: FDA-Public Use
  Company Number: None

PATIENT
  Age: 58 Year
  Sex: Female
  Weight: 63.049 kg

DRUGS (1)
  1. FLONASE [Suspect]

REACTIONS (5)
  - CORNEAL ABRASION [None]
  - DRY EYE [None]
  - EYE PAIN [None]
  - OCULAR HYPERAEMIA [None]
  - EYE DISCHARGE [None]
